FAERS Safety Report 8607340 (Version 2)
Quarter: 2013Q3

REPORT INFORMATION
  Report Type: Spontaneous
  Country: US (occurrence: US)
  Receive Date: 20120611
  Receipt Date: 20130723
  Transmission Date: 20140515
  Serious: Yes (Hospitalization, Disabling)
  Sender: FDA-Public Use
  Company Number: US-ASTRAZENECA-2012SE36231

PATIENT
  Age: 41 Year
  Sex: Female

DRUGS (16)
  1. NEXIUM [Suspect]
     Indication: GASTROOESOPHAGEAL REFLUX DISEASE
     Dosage: ONCE A DAY
     Route: 048
  2. PRILOSEC [Suspect]
     Indication: GASTROOESOPHAGEAL REFLUX DISEASE
     Route: 048
  3. BENTYL [Concomitant]
     Indication: ABDOMINAL PAIN UPPER
  4. ZANTAC [Concomitant]
  5. TAGAMET [Concomitant]
  6. TUMS [Concomitant]
  7. ROLAIDS [Concomitant]
  8. MILK OF MAGNESIA [Concomitant]
  9. TOPROL XL [Concomitant]
     Indication: BLOOD PRESSURE
  10. SINGULAIR [Concomitant]
     Indication: MULTIPLE ALLERGIES
  11. SINGULAIR [Concomitant]
     Indication: SINUSITIS
  12. PLAQUENIL [Concomitant]
     Indication: BONE PAIN
  13. CELEBREX [Concomitant]
     Indication: INFLAMMATION
  14. POTASSIUM [Concomitant]
  15. VITAMIN D [Concomitant]
  16. FISH OIL [Concomitant]

REACTIONS (11)
  - Gallbladder disorder [Unknown]
  - Neck injury [Unknown]
  - Osteoporosis [Unknown]
  - Bone density decreased [Unknown]
  - Systemic lupus erythematosus [Unknown]
  - Foot fracture [Unknown]
  - Arthritis [Unknown]
  - Back pain [Unknown]
  - Pain in extremity [Unknown]
  - Vitamin D deficiency [Unknown]
  - Arthralgia [Unknown]
